FAERS Safety Report 7728853-X (Version None)
Quarter: 2011Q3

REPORT INFORMATION
  Report Type: 
  Country: None (occurrence: None)
  Receive Date: 20110831
  Receipt Date: 20110816
  Transmission Date: 20111222
  Serious: Yes (Hospitalization, Other)
  Sender: FDA-Public Use
  Company Number: 2011MA012014

PATIENT
  Age: 64 Year
  Sex: Female

DRUGS (15)
  1. FELODIPINE [Concomitant]
  2. MIANSERIN (MIANSERIN) [Suspect]
     Indication: DEPRESSIVE SYMPTOM
     Dosage: 60 MG, QD
  3. DIAZEPAM [Suspect]
     Indication: PRODUCT USED FOR UNKNOWN INDICATION
     Dosage: 15 MG, QD
  4. ATORVASTATIN [Concomitant]
  5. HALOPERIDOL [Suspect]
     Indication: DRUG WITHDRAWAL SYNDROME
     Dosage: 4 MG, QD
  6. ESTRADIOL [Concomitant]
  7. MIRTAZAPINE [Suspect]
     Indication: DEPRESSIVE SYMPTOM
     Dosage: 75 MG, QD
  8. LEVOTHYROXINE SODIUM [Concomitant]
  9. LISINOPRIL [Concomitant]
  10. LORAZEPAM [Suspect]
     Indication: DRUG WITHDRAWAL SYNDROME
     Dosage: 10 MG, QD
  11. VENLAFAXINE [Suspect]
     Indication: DEPRESSIVE SYMPTOM
     Dosage: 450 MG, QD
  12. METOPROLOL SUCCINATE [Concomitant]
  13. SALICYLATE [Concomitant]
  14. DYDROGESTERONE TAB [Concomitant]
  15. PANTOPRAZOLE [Concomitant]

REACTIONS (22)
  - ANXIETY [None]
  - DISSOCIATION [None]
  - CONSCIOUSNESS FLUCTUATING [None]
  - DISTURBANCE IN ATTENTION [None]
  - DEMENTIA ALZHEIMER'S TYPE [None]
  - TANGENTIALITY [None]
  - COGNITIVE DISORDER [None]
  - IRRITABILITY [None]
  - AGITATION [None]
  - VASCULAR ENCEPHALOPATHY [None]
  - DELIRIUM [None]
  - MEMORY IMPAIRMENT [None]
  - THINKING ABNORMAL [None]
  - DRUG WITHDRAWAL SYNDROME [None]
  - PSYCHOMOTOR HYPERACTIVITY [None]
  - DRUG DEPENDENCE [None]
  - SPEECH DISORDER [None]
  - DRUG LEVEL INCREASED [None]
  - EXECUTIVE DYSFUNCTION [None]
  - VASCULAR DEMENTIA [None]
  - ILLOGICAL THINKING [None]
  - DISORIENTATION [None]
